FAERS Safety Report 19864496 (Version 1)
Quarter: 2021Q3

REPORT INFORMATION
  Report Type: Spontaneous
  Country: CA (occurrence: CA)
  Receive Date: 20210921
  Receipt Date: 20210921
  Transmission Date: 20211014
  Serious: Yes (Other)
  Sender: FDA-Public Use
  Company Number: CA-PFIZER INC-2019173132

PATIENT
  Age: 66 Year
  Sex: Female

DRUGS (4)
  1. IBUPROFEN. [Concomitant]
     Active Substance: IBUPROFEN
     Indication: PAIN
     Dosage: UNK UNK, AS NEEDED
     Dates: start: 20190926
  2. XELJANZ [Suspect]
     Active Substance: TOFACITINIB CITRATE
     Indication: PSORIATIC ARTHROPATHY
     Dosage: 5 MG, 2X/DAY
     Route: 048
     Dates: start: 20190222
  3. IBUPROFEN. [Concomitant]
     Active Substance: IBUPROFEN
     Indication: HEADACHE
  4. ACLASTA [Concomitant]
     Active Substance: ZOLEDRONIC ACID
     Dosage: 5 MG, YEARLY
     Route: 042

REACTIONS (15)
  - Insomnia [Not Recovered/Not Resolved]
  - Headache [Unknown]
  - Product dose omission issue [Unknown]
  - Fatigue [Unknown]
  - Temperature intolerance [Unknown]
  - Loss of personal independence in daily activities [Unknown]
  - Vomiting [Unknown]
  - Bursitis [Not Recovered/Not Resolved]
  - Psoriatic arthropathy [Not Recovered/Not Resolved]
  - Immunodeficiency [Not Recovered/Not Resolved]
  - Liver function test increased [Unknown]
  - Chills [Unknown]
  - Grip strength decreased [Unknown]
  - Drug ineffective [Not Recovered/Not Resolved]
  - Musculoskeletal stiffness [Not Recovered/Not Resolved]
